FAERS Safety Report 6016010-7 (Version None)
Quarter: 2008Q4

REPORT INFORMATION
  Report Type: 
  Country: None (occurrence: None)
  Receive Date: 20081222
  Receipt Date: 20081210
  Transmission Date: 20090506
  Serious: Yes (Other)
  Sender: FDA-Public Use
  Company Number: JP-PFIZER INC-2008152860

PATIENT

DRUGS (1)
  1. SOMATROPIN [Suspect]
     Indication: GROWTH HORMONE DEFICIENCY
     Dosage: UNK
     Dates: start: 20060101, end: 20080601

REACTIONS (2)
  - BLOOD CHOLESTEROL INCREASED [None]
  - NEPHROTIC SYNDROME [None]
